FAERS Safety Report 9016938 (Version 3)
Quarter: 2014Q2

REPORT INFORMATION
  Report Type: Spontaneous
  Country: JP (occurrence: JP)
  Receive Date: 20130117
  Receipt Date: 20140410
  Transmission Date: 20141212
  Serious: No
  Sender: FDA-Public Use
  Company Number: PHHY2012JP089832

PATIENT
  Sex: Male

DRUGS (5)
  1. GLIVEC [Suspect]
     Indication: CHRONIC MYELOID LEUKAEMIA
     Dosage: 250 MG, DAILY
     Route: 048
     Dates: start: 20101104, end: 20110501
  2. GLIVEC [Suspect]
     Dosage: 200 MG, DAILY
     Route: 048
     Dates: start: 20120910
  3. GLIVEC [Suspect]
     Dosage: UKN
     Route: 048
  4. BAKTAR [Suspect]
     Dosage: 40 MG, DAILY
     Route: 048
     Dates: start: 20121003
  5. DIFLUCAN [Concomitant]
     Dosage: 50 MG, DAILY
     Route: 048
     Dates: start: 20121001

REACTIONS (3)
  - Haematuria [Recovered/Resolved]
  - Drug intolerance [Unknown]
  - Muscle rigidity [Unknown]
